FAERS Safety Report 11137295 (Version 2)
Quarter: 2015Q2

REPORT INFORMATION
  Report Type: Report from Study
  Country: US (occurrence: US)
  Receive Date: 20150526
  Receipt Date: 20150617
  Transmission Date: 20150821
  Serious: Yes (Hospitalization, Other)
  Sender: FDA-Public Use
  Company Number: US-PFIZER INC-2015175163

PATIENT
  Age: 55 Year
  Sex: Female
  Weight: 61 kg

DRUGS (2)
  1. TRAMETINIB [Suspect]
     Active Substance: TRAMETINIB
     Indication: LIP SQUAMOUS CELL CARCINOMA
     Dosage: UNK
     Route: 048
     Dates: start: 20150423
  2. PALBOCICLIB [Suspect]
     Active Substance: PALBOCICLIB
     Indication: LIP SQUAMOUS CELL CARCINOMA
     Dosage: UNK
     Route: 048
     Dates: start: 20150423

REACTIONS (1)
  - Pneumonia [Recovered/Resolved]

NARRATIVE: CASE EVENT DATE: 20150511
